FAERS Safety Report 11480617 (Version 1)
Quarter: 2015Q3

REPORT INFORMATION
  Report Type: Spontaneous
  Country: TW (occurrence: TW)
  Receive Date: 20150909
  Receipt Date: 20150909
  Transmission Date: 20151125
  Serious: Yes (Hospitalization)
  Sender: FDA-Public Use
  Company Number: TW-ROXANE LABORATORIES, INC.-2015-RO-01492RO

PATIENT
  Age: 38 Year
  Sex: Male

DRUGS (3)
  1. DISULFIRAM. [Suspect]
     Active Substance: DISULFIRAM
     Indication: ALCOHOLISM
     Dosage: 200 MG
     Route: 065
  2. ESCITALOPRAM [Concomitant]
     Active Substance: ESCITALOPRAM OXALATE
     Indication: DEPRESSION
     Dosage: 10 MG
     Route: 065
  3. GRISEOFULVIN. [Suspect]
     Active Substance: GRISEOFULVIN
     Indication: ONYCHOMYCOSIS
     Dosage: 500 MG
     Route: 065

REACTIONS (1)
  - Delirium [Recovered/Resolved]
